FAERS Safety Report 9075681 (Version 1)
Quarter: 2013Q1

REPORT INFORMATION
  Report Type: Report from Study
  Country: US (occurrence: US)
  Receive Date: 20130129
  Receipt Date: 20130129
  Transmission Date: 20140127
  Serious: No
  Sender: FDA-Public Use
  Company Number: US-ABBOTT-12P-163-0939499-00

PATIENT
  Age: 32 Year
  Sex: Male

DRUGS (3)
  1. HUMIRA 40 MG/0.8 ML PEN [Suspect]
     Indication: PSORIASIS
     Route: 058
     Dates: start: 20120524
  2. METHOTREXATE [Concomitant]
     Indication: PSORIASIS
     Dosage: 4 TABLETS WEEKLY
     Route: 048
  3. FOLIC ACID [Concomitant]
     Indication: PSORIASIS
     Dosage: 1MG DAILY
     Route: 048

REACTIONS (1)
  - Injection site pain [Recovered/Resolved]
